FAERS Safety Report 9445432 (Version 2)
Quarter: 2013Q3

REPORT INFORMATION
  Report Type: Spontaneous
  Country: US (occurrence: None)
  Receive Date: 20130726
  Receipt Date: 20130814
  Transmission Date: 20140515
  Serious: Yes (Life-Threatening, Hospitalization)
  Sender: FDA-Public Use
  Company Number: US-145460

PATIENT
  Age: 87 Year
  Sex: Female
  Weight: 60.33 kg

DRUGS (13)
  1. BOTULISM ANTITOXIN [Suspect]
     Indication: BOTULISM
     Route: 042
     Dates: start: 20130627, end: 20130627
  2. ASPIRIN [Concomitant]
  3. FENTANYL [Concomitant]
  4. ETOMIDATE [Concomitant]
  5. SODIUM CHLORIDE [Concomitant]
  6. DULCOLAX [Concomitant]
  7. COLACE [Concomitant]
  8. PERIDEX [Concomitant]
  9. HEPARIN [Concomitant]
  10. IOPAMIDOL [Concomitant]
  11. LACTULOSE [Concomitant]
  12. LORAZEPAM [Concomitant]
  13. MIDAZOLAM [Concomitant]

REACTIONS (6)
  - Hypoventilation [None]
  - Respiratory failure [None]
  - Neuromyopathy [None]
  - Pyrexia [None]
  - Alveolar lung disease [None]
  - Cardiac arrest [None]
